FAERS Safety Report 19099642 (Version 4)
Quarter: 2021Q2

REPORT INFORMATION
  Report Type: Spontaneous
  Country: CH (occurrence: CH)
  Receive Date: 20210406
  Receipt Date: 20210422
  Transmission Date: 20210717
  Serious: Yes (Other)
  Sender: FDA-Public Use
  Company Number: CH-IPSEN BIOPHARMACEUTICALS, INC.-2021-08675

PATIENT
  Age: 25 Year
  Sex: Male
  Weight: 25 kg

DRUGS (7)
  1. DICLOFENAC [Concomitant]
     Active Substance: DICLOFENAC
     Indication: HERNIA REPAIR
     Dosage: DAILY
     Dates: start: 202103, end: 202103
  2. AZZALURE [Suspect]
     Active Substance: BOTULINUM TOXIN TYPE A
     Indication: BRUXISM
  3. ZOLDORM [Concomitant]
     Active Substance: ZOLPIDEM TARTRATE
     Dosage: ONCE EVERY 2 WEEKS IRREGULARLY
  4. IBUPROFEN. [Concomitant]
     Active Substance: IBUPROFEN
     Indication: HERNIA REPAIR
     Dosage: DAILY
     Dates: start: 202103, end: 202103
  5. MULTIVITAMINS [Concomitant]
     Active Substance: VITAMINS
     Dosage: REGULARLY
  6. AZZALURE [Suspect]
     Active Substance: BOTULINUM TOXIN TYPE A
     Indication: SKIN WRINKLING
     Dosage: DOSE? LEFT/RIGHT TOTAL 25 UNITS, 1 SITE OF INJECTION
     Route: 030
     Dates: start: 20210330, end: 20210330
  7. AZZALURE [Suspect]
     Active Substance: BOTULINUM TOXIN TYPE A
     Indication: OFF LABEL USE

REACTIONS (23)
  - Vision blurred [Recovered/Resolved]
  - Hypokinesia [Unknown]
  - Muscle twitching [Recovered/Resolved]
  - Facial asymmetry [Not Recovered/Not Resolved]
  - Fatigue [Recovered/Resolved]
  - Dizziness [Recovered/Resolved]
  - Eye swelling [Recovered/Resolved]
  - Dizziness [Recovered/Resolved]
  - Eyelid ptosis [Recovered/Resolved]
  - Dizziness [Recovered/Resolved]
  - Injection site pain [Recovered/Resolved]
  - Headache [Recovered/Resolved]
  - Eye disorder [Recovered/Resolved]
  - Muscle tightness [Not Recovered/Not Resolved]
  - Dysphagia [Recovering/Resolving]
  - Off label use [Unknown]
  - Muscle tightness [Unknown]
  - Panic reaction [Unknown]
  - Mastication disorder [Recovered/Resolved]
  - Dizziness [Recovered/Resolved]
  - Drug ineffective [Unknown]
  - Excessive gingival display [Recovered/Resolved]
  - Neuromuscular toxicity [Unknown]

NARRATIVE: CASE EVENT DATE: 2021
